FAERS Safety Report 19581163 (Version 1)
Quarter: 2021Q3

REPORT INFORMATION
  Report Type: Spontaneous
  Country: US (occurrence: US)
  Receive Date: 20210719
  Receipt Date: 20210719
  Transmission Date: 20211014
  Serious: No
  Sender: FDA-Public Use
  Company Number: US-NOVOPROD-812571

PATIENT
  Sex: Male

DRUGS (1)
  1. OZEMPIC [Suspect]
     Active Substance: SEMAGLUTIDE
     Indication: GLUCOSE TOLERANCE IMPAIRED
     Dosage: 0.25 MG, QW
     Route: 058
     Dates: start: 20210510

REACTIONS (4)
  - Illness anxiety disorder [Unknown]
  - Product use in unapproved indication [Unknown]
  - Agitation [Unknown]
  - Decreased appetite [Unknown]

NARRATIVE: CASE EVENT DATE: 202105
